FAERS Safety Report 8604916 (Version 2)
Quarter: 2013Q1

REPORT INFORMATION
  Report Type: Report from Study
  Country: US (occurrence: US)
  Receive Date: 20120608
  Receipt Date: 20130318
  Transmission Date: 20140127
  Serious: Yes (Death)
  Sender: FDA-Public Use
  Company Number: US-SANOFI-AVENTIS-2012SA040427

PATIENT
  Sex: 0

DRUGS (4)
  1. DOCETAXEL [Suspect]
     Indication: GASTROOESOPHAGEAL CANCER
     Dosage: ON DAY 1 AND 8 OF EVERY 3 WEEKS CYCLE.
     Route: 065
  2. CISPLATIN [Suspect]
     Indication: GASTROOESOPHAGEAL CANCER
     Dosage: ON DAY 1 AND 8 OF EVERY 3 WEEKS CYCLE.
     Route: 065
  3. IRINOTECAN [Suspect]
     Indication: GASTROOESOPHAGEAL CANCER
     Dosage: ON DAY 1 AND 8 OF EVERY 3 WEEKS CYCLE.
     Route: 065
  4. BEVACIZUMAB [Suspect]
     Indication: GASTROOESOPHAGEAL CANCER
     Dosage: ON DAY 1
     Route: 065

REACTIONS (1)
  - Sudden death [Fatal]
